FAERS Safety Report 25065576 (Version 2)
Quarter: 2025Q1

REPORT INFORMATION
  Report Type: Report from Study
  Country: US (occurrence: US)
  Receive Date: 20250311
  Receipt Date: 20250325
  Transmission Date: 20250409
  Serious: No
  Sender: SYNDAX
  Company Number: US-SYNDAX PHARMACEUTICALS, INC.-2025US000212

PATIENT

DRUGS (3)
  1. REVUFORJ [Suspect]
     Active Substance: REVUMENIB CITRATE
     Indication: Product used for unknown indication
     Route: 048
  2. REVUFORJ [Suspect]
     Active Substance: REVUMENIB CITRATE
     Route: 048
  3. REVUFORJ [Suspect]
     Active Substance: REVUMENIB CITRATE
     Route: 048
     Dates: start: 20250209

REACTIONS (2)
  - Influenza [Unknown]
  - Diarrhoea [Unknown]
